FAERS Safety Report 8319164-2 (Version None)
Quarter: 2012Q2

REPORT INFORMATION
  Report Type: 
  Country: None (occurrence: None)
  Receive Date: 20120426
  Receipt Date: 20120426
  Transmission Date: 20120825
  Serious: Yes (Life-Threatening, Hospitalization)
  Sender: FDA-Public Use
  Company Number: None

PATIENT
  Sex: Female
  Weight: 44.9 kg

DRUGS (10)
  1. DABIGATRAN [Suspect]
     Indication: ATRIAL FIBRILLATION
     Dosage: 150 MG BID PO
     Route: 048
     Dates: start: 20111228
  2. ASPIRIN [Suspect]
     Indication: CORONARY ARTERY DISEASE
     Dosage: 81 MG QD PO
     Route: 048
     Dates: start: 20111228
  3. LIPITOR [Concomitant]
  4. METOPROLOL TARTRATE [Concomitant]
  5. V-C FORTE [Concomitant]
  6. SPIRIVA [Concomitant]
  7. BACTRIM DS [Concomitant]
  8. METOLAZONE [Concomitant]
  9. BENICAR [Concomitant]
  10. BUMEX [Concomitant]

REACTIONS (7)
  - COAGULATION TIME PROLONGED [None]
  - HYPOTENSION [None]
  - HAEMATOCHEZIA [None]
  - RENAL FAILURE ACUTE [None]
  - CELLULITIS [None]
  - DRUG LEVEL INCREASED [None]
  - EPISTAXIS [None]
